FAERS Safety Report 13422656 (Version 1)
Quarter: 2017Q2

REPORT INFORMATION
  Report Type: Spontaneous
  Country: US (occurrence: US)
  Receive Date: 20170407
  Receipt Date: 20170407
  Transmission Date: 20170830
  Serious: Yes (Death)
  Sender: FDA-Public Use
  Company Number: None

PATIENT
  Age: 78 Year
  Sex: Male

DRUGS (1)
  1. HUMIRA [Suspect]
     Active Substance: ADALIMUMAB
     Indication: MALAISE
     Dosage: 40MG PEN ONCE EVERY OTHER WEEK SUBCUTANEOUSLY
     Route: 058
     Dates: start: 20170328, end: 20170405

REACTIONS (1)
  - Surgery [None]

NARRATIVE: CASE EVENT DATE: 20170405
